FAERS Safety Report 7040495-0 (Version None)
Quarter: 2010Q4

REPORT INFORMATION
  Report Type: 
  Country: None (occurrence: None)
  Receive Date: 20101008
  Receipt Date: 20101008
  Transmission Date: 20110411
  Serious: Yes (Other)
  Sender: FDA-Public Use
  Company Number: None

PATIENT
  Sex: Female
  Weight: 70.3075 kg

DRUGS (1)
  1. BOTOX [Suspect]
     Indication: MUSCLE SPASMS
     Dosage: 10 INJECTIONS 1 TIME 5-RIGHT SIDE 5-LEFT SIDE
     Dates: start: 20100629

REACTIONS (3)
  - MUSCLE SPASMS [None]
  - MUSCULOSKELETAL DISORDER [None]
  - SWELLING [None]
